FAERS Safety Report 21741390 (Version 2)
Quarter: 2022Q4

REPORT INFORMATION
  Report Type: Spontaneous
  Country: JP (occurrence: JP)
  Receive Date: 20221216
  Receipt Date: 20221221
  Transmission Date: 20230113
  Serious: Yes (Death, Other)
  Sender: FDA-Public Use
  Company Number: JP-CHUGAI-2022012243

PATIENT
  Age: 74 Year
  Sex: Male
  Weight: 56.4 kg

DRUGS (10)
  1. POLIVY [Suspect]
     Active Substance: POLATUZUMAB VEDOTIN-PIIQ
     Indication: Diffuse large B-cell lymphoma
     Dosage: 100 MILLIGRAM, ONCE/3WEEKS
     Route: 041
     Dates: start: 20220108, end: 20220420
  2. BENDAMUSTINE HYDROCHLORIDE [Suspect]
     Active Substance: BENDAMUSTINE HYDROCHLORIDE
     Indication: Diffuse large B-cell lymphoma
     Dosage: 100 MILLIGRAM, ONCE/3WEEKS
     Route: 041
     Dates: start: 20220108, end: 20220421
  3. SULFAMETHOXAZOLE\TRIMETHOPRIM [Concomitant]
     Active Substance: SULFAMETHOXAZOLE\TRIMETHOPRIM
     Dosage: UNK
     Route: 048
  4. METHYLCOBALAMIN [Concomitant]
     Active Substance: METHYLCOBALAMIN
     Dosage: UNK
     Route: 048
  5. ITRACONAZOLE [Concomitant]
     Active Substance: ITRACONAZOLE
     Dosage: UNK
     Route: 048
  6. CALONAL [Concomitant]
     Active Substance: ACETAMINOPHEN
     Dosage: UNK
     Route: 065
     Dates: start: 20220107
  7. POLARAMINE [Concomitant]
     Active Substance: DEXCHLORPHENIRAMINE MALEATE
     Dosage: UNK
     Route: 065
     Dates: start: 20220107
  8. BISOPROLOL FUMARATE [Concomitant]
     Active Substance: BISOPROLOL FUMARATE
     Dosage: UNK
     Route: 048
     Dates: end: 20220207
  9. DECADRON [Concomitant]
     Active Substance: DEXAMETHASONE
     Dosage: UNK
     Route: 048
     Dates: start: 20220110
  10. RITUXIMAB [Concomitant]
     Active Substance: RITUXIMAB
     Indication: Diffuse large B-cell lymphoma
     Route: 041
     Dates: start: 20220107, end: 20220420

REACTIONS (4)
  - Immunodeficiency [Unknown]
  - Platelet count decreased [Not Recovered/Not Resolved]
  - Sepsis [Unknown]
  - Diffuse large B-cell lymphoma [Fatal]

NARRATIVE: CASE EVENT DATE: 20220608
